FAERS Safety Report 7069671-8 (Version None)
Quarter: 2010Q4

REPORT INFORMATION
  Report Type: 
  Country: None (occurrence: None)
  Receive Date: 20101028
  Receipt Date: 20100427
  Transmission Date: 20110411
  Serious: No
  Sender: FDA-Public Use
  Company Number: US-WYE-H14970610

PATIENT
  Sex: Male
  Weight: 118.04 kg

DRUGS (1)
  1. EFFEXOR [Suspect]
     Indication: DEPRESSION

REACTIONS (2)
  - SEXUAL DYSFUNCTION [None]
  - SOMNOLENCE [None]
